FAERS Safety Report 7407325-6 (Version None)
Quarter: 2011Q2

REPORT INFORMATION
  Report Type: 
  Country: None (occurrence: None)
  Receive Date: 20110411
  Receipt Date: 20110325
  Transmission Date: 20111010
  Serious: Yes (Disabling)
  Sender: FDA-Public Use
  Company Number: PHHY2011EC26007

PATIENT
  Sex: Female

DRUGS (1)
  1. DIOVAN HCT [Suspect]
     Indication: HYPERTENSION
     Dosage: 1 DF, 160/12.5MG  01 TABLET DAILY
     Route: 048
     Dates: start: 20070101, end: 20110309

REACTIONS (3)
  - FALL [None]
  - GAIT DISTURBANCE [None]
  - ARTHROPATHY [None]
